FAERS Safety Report 9851356 (Version 1)
Quarter: 2014Q1

REPORT INFORMATION
  Report Type: Report from Study
  Country: JP (occurrence: JP)
  Receive Date: 20140129
  Receipt Date: 20140129
  Transmission Date: 20141002
  Serious: Yes (Hospitalization)
  Sender: FDA-Public Use
  Company Number: JP-ROCHE-1338790

PATIENT
  Age: 80 Year
  Sex: Male
  Weight: 56 kg

DRUGS (14)
  1. RANIBIZUMAB [Suspect]
     Indication: AGE-RELATED MACULAR DEGENERATION
     Route: 050
     Dates: start: 20131018
  2. RANIBIZUMAB [Suspect]
     Indication: POLYPOIDAL CHOROIDAL VASCULOPATHY
     Dosage: DOSE: 0.5MG?MOST RECENT DOSE:19/DEC/2013,
     Route: 050
     Dates: start: 20131122
  3. RANIBIZUMAB [Suspect]
     Dosage: DOSE; 0.5MG
     Route: 050
     Dates: start: 20131219
  4. VERTEPORFIN PDT [Suspect]
     Indication: AGE-RELATED MACULAR DEGENERATION
     Route: 050
     Dates: start: 20131122, end: 20131122
  5. VERTEPORFIN PDT [Suspect]
     Indication: POLYPOIDAL CHOROIDAL VASCULOPATHY
  6. BIOFERMIN T [Concomitant]
  7. MAGLAX [Concomitant]
     Route: 065
     Dates: start: 20130327
  8. MUCOSOLVAN [Concomitant]
     Route: 065
     Dates: start: 20110601
  9. NORVASC [Concomitant]
     Route: 065
     Dates: start: 20080705
  10. MICARDIS [Concomitant]
     Route: 065
     Dates: start: 20091209
  11. HARNAL [Concomitant]
     Route: 065
     Dates: start: 20080507
  12. BAYASPIRIN [Concomitant]
     Route: 065
     Dates: start: 20130805
  13. CRAVIT [Concomitant]
     Indication: AGE-RELATED MACULAR DEGENERATION
     Route: 065
     Dates: start: 20140114
  14. CRAVIT [Concomitant]
     Indication: POLYPOIDAL CHOROIDAL VASCULOPATHY

REACTIONS (1)
  - Presyncope [Recovered/Resolved]
